FAERS Safety Report 4515458-7 (Version None)
Quarter: 2004Q4

REPORT INFORMATION
  Report Type: 
  Country: None (occurrence: None)
  Receive Date: 20041126
  Receipt Date: 20041117
  Transmission Date: 20050328
  Serious: Yes (Death)
  Sender: FDA-Public Use
  Company Number: 2004-00812

PATIENT
  Age: 62 Year
  Sex: Male
  Weight: 78.9 kg

DRUGS (4)
  1. VELCADE [Suspect]
     Indication: MULTIPLE MYELOMA
     Dosage: 1.65 MG, IV BOLUS
     Route: 040
     Dates: start: 20031201, end: 20041114
  2. PREDNISONE [Concomitant]
  3. THALIDOMIDE [Concomitant]
  4. DECADRON [Concomitant]

REACTIONS (8)
  - CHRONIC OBSTRUCTIVE AIRWAYS DISEASE EXACERBATED [None]
  - HYPOTENSION [None]
  - PNEUMONIA [None]
  - RENAL FAILURE ACUTE [None]
  - RESPIRATORY ARREST [None]
  - RESPIRATORY FAILURE [None]
  - SEPSIS [None]
  - SMOKER [None]
